FAERS Safety Report 6823152-2 (Version None)
Quarter: 2010Q3

REPORT INFORMATION
  Report Type: 
  Country: None (occurrence: None)
  Receive Date: 20100708
  Receipt Date: 20100628
  Transmission Date: 20110219
  Serious: Yes (Hospitalization, Other)
  Sender: FDA-Public Use
  Company Number: CA-ABBOTT-10P-028-0653438-00

PATIENT
  Sex: Female
  Weight: 108 kg

DRUGS (1)
  1. HUMIRA [Suspect]
     Indication: CROHN'S DISEASE
     Route: 058
     Dates: start: 20100326, end: 20100501

REACTIONS (10)
  - ABDOMINAL ABSCESS [None]
  - ABDOMINAL PAIN [None]
  - ABDOMINAL PAIN UPPER [None]
  - ABSCESS [None]
  - COLECTOMY [None]
  - CROHN'S DISEASE [None]
  - FISTULA [None]
  - INCISION SITE PAIN [None]
  - INTESTINAL FISTULA [None]
  - SMALL INTESTINAL RESECTION [None]
